FAERS Safety Report 10067551 (Version 2)
Quarter: 2014Q2

REPORT INFORMATION
  Report Type: Spontaneous
  Country: JP (occurrence: None)
  Receive Date: 20140407
  Receipt Date: 20140501
  Transmission Date: 20141212
  Serious: Yes (Hospitalization)
  Sender: FDA-Public Use
  Company Number: JP-015162

PATIENT
  Age: 77 Year
  Sex: Male
  Weight: 45 kg

DRUGS (3)
  1. DEGARELIX (GONAX) [Suspect]
     Indication: PROSTATE CANCER
     Route: 058
     Dates: start: 20130311, end: 20130311
  2. FLIVAS [Concomitant]
  3. BENZFORE [Suspect]
     Indication: POLLAKIURIA
     Route: 048
     Dates: start: 20140208

REACTIONS (5)
  - Dysuria [None]
  - Urinary tract infection [None]
  - Pyelocystitis [None]
  - Injection site induration [None]
  - Thirst [None]
